FAERS Safety Report 5707859-6 (Version None)
Quarter: 2008Q2

REPORT INFORMATION
  Report Type: 
  Country: None (occurrence: None)
  Receive Date: 20080414
  Receipt Date: 20080331
  Transmission Date: 20081010
  Serious: Yes (Life-Threatening, Hospitalization)
  Sender: FDA-Public Use
  Company Number: 100#03#2008-01805

PATIENT
  Age: 42 Year
  Sex: Female

DRUGS (10)
  1. DOXYCYCLINE [Suspect]
     Indication: STAPHYLOCOCCAL INFECTION
     Dosage: 100 MG
     Route: 048
     Dates: start: 20080211, end: 20080304
  2. RIFAMPICIN [Suspect]
     Indication: STAPHYLOCOCCAL INFECTION
     Dosage: 300 MG TWICE
     Route: 048
     Dates: start: 20080211, end: 20080304
  3. AMITRIPTYLINE HCL [Concomitant]
  4. BACLOFEN [Concomitant]
  5. DICLOFENAC SODIUM [Concomitant]
  6. LACTULOSE [Concomitant]
  7. OMEPRAZOLE [Concomitant]
  8. OXYCODONE HYDROCHLORIDE (OXYCODONE) [Concomitant]
  9. ACETAMINOPHEN [Concomitant]
  10. SENNA (7.5 MILLIGRAM) (SENNA) [Concomitant]

REACTIONS (1)
  - STEVENS-JOHNSON SYNDROME [None]
